FAERS Safety Report 19936182 (Version 10)
Quarter: 2023Q2

REPORT INFORMATION
  Report Type: Report from Study
  Country: CO (occurrence: CO)
  Receive Date: 20211009
  Receipt Date: 20230628
  Transmission Date: 20230721
  Serious: Yes (Hospitalization, Other)
  Sender: FDA-Public Use
  Company Number: CO-ABBVIE-21K-036-3815351-00

PATIENT
  Sex: Female
  Weight: 75 kg

DRUGS (17)
  1. HUMIRA [Suspect]
     Active Substance: ADALIMUMAB
     Indication: Rheumatoid arthritis
     Route: 058
     Dates: start: 20090122
  2. HUMIRA [Suspect]
     Active Substance: ADALIMUMAB
  3. DOLEX [Suspect]
     Active Substance: IBUPROFEN
     Indication: Adverse event
     Route: 065
  4. OXAPROZIN [Suspect]
     Active Substance: OXAPROZIN
     Indication: Product used for unknown indication
     Route: 065
     Dates: start: 2022, end: 2022
  5. DOLIREN [Concomitant]
     Indication: Adverse event
     Route: 048
  6. SULFASALAZINE [Concomitant]
     Active Substance: SULFASALAZINE
     Indication: Adverse event
     Route: 048
  7. METHYLPREDNISOLONE [Concomitant]
     Active Substance: METHYLPREDNISOLONE
     Indication: Product used for unknown indication
     Route: 065
  8. LEFLUNOMIDE [Concomitant]
     Active Substance: LEFLUNOMIDE
     Indication: Product used for unknown indication
     Route: 065
  9. MEDROL [Concomitant]
     Active Substance: METHYLPREDNISOLONE
     Indication: Pain
     Route: 065
     Dates: start: 2022
  10. ARAVA [Concomitant]
     Active Substance: LEFLUNOMIDE
     Indication: Adverse event
     Route: 065
  11. TERIPARATIDE [Concomitant]
     Active Substance: TERIPARATIDE
     Indication: Osteoporosis
     Route: 058
     Dates: start: 2021
  12. TERIPARATIDE [Concomitant]
     Active Substance: TERIPARATIDE
     Indication: Osteoporosis
     Dosage: 1 DAILY
     Route: 058
     Dates: start: 202111, end: 202206
  13. THIOCTIC ACID [Concomitant]
     Active Substance: THIOCTIC ACID
     Indication: Neuropathy peripheral
     Route: 065
  14. INDAPAMIDE [Concomitant]
     Active Substance: INDAPAMIDE
     Indication: Hypertension
     Route: 065
  15. VALSARTAN [Concomitant]
     Active Substance: VALSARTAN
     Indication: Hypertension
     Route: 065
  16. METOPROLOL [Concomitant]
     Active Substance: METOPROLOL
     Indication: Hypertension
     Route: 065
  17. ENALAPRIL [Concomitant]
     Active Substance: ENALAPRIL
     Indication: Hypertension
     Route: 065

REACTIONS (38)
  - Fracture [Not Recovered/Not Resolved]
  - Accident [Not Recovered/Not Resolved]
  - Spinal disorder [Recovered/Resolved]
  - Arthropathy [Not Recovered/Not Resolved]
  - Depression [Recovered/Resolved]
  - Spinal cord compression [Not Recovered/Not Resolved]
  - Musculoskeletal disorder [Not Recovered/Not Resolved]
  - Hand fracture [Recovering/Resolving]
  - Limb deformity [Not Recovered/Not Resolved]
  - Gait disturbance [Recovering/Resolving]
  - Limb discomfort [Not Recovered/Not Resolved]
  - Spinal column injury [Not Recovered/Not Resolved]
  - Osteoarthritis [Recovering/Resolving]
  - Somnolence [Not Recovered/Not Resolved]
  - Movement disorder [Not Recovered/Not Resolved]
  - Back injury [Not Recovered/Not Resolved]
  - Osteoporosis [Not Recovered/Not Resolved]
  - Capillary fragility [Recovered/Resolved]
  - Renal injury [Unknown]
  - Arthritis [Not Recovered/Not Resolved]
  - Crying [Recovered/Resolved]
  - Arthropathy [Not Recovered/Not Resolved]
  - Fall [Not Recovered/Not Resolved]
  - Neuropathy peripheral [Recovering/Resolving]
  - Purpura [Unknown]
  - Haematoma [Recovered/Resolved]
  - Contusion [Recovered/Resolved]
  - Groin pain [Not Recovered/Not Resolved]
  - Bone pain [Recovering/Resolving]
  - Pyrexia [Recovered/Resolved]
  - Pain in extremity [Recovering/Resolving]
  - Pain in extremity [Recovered/Resolved]
  - Pain [Recovered/Resolved]
  - Pain [Recovered/Resolved]
  - Paralysis [Not Recovered/Not Resolved]
  - Arthralgia [Recovering/Resolving]
  - Pain [Not Recovered/Not Resolved]
  - Ligament sprain [Unknown]

NARRATIVE: CASE EVENT DATE: 20160101
